FAERS Safety Report 21647073 (Version 2)
Quarter: 2023Q4

REPORT INFORMATION
  Report Type: Report from Study
  Country: PH (occurrence: PH)
  Receive Date: 20221127
  Receipt Date: 20231211
  Transmission Date: 20240110
  Serious: Yes (Death, Other)
  Sender: FDA-Public Use
  Company Number: PH-002147023-NVSC2022PH263051

PATIENT
  Sex: Female

DRUGS (3)
  1. PIQRAY [Suspect]
     Active Substance: ALPELISIB
     Indication: Hormone receptor positive HER2 negative breast cancer
     Dosage: 300 MG, QD
     Route: 065
     Dates: start: 20220224
  2. PIQRAY [Suspect]
     Active Substance: ALPELISIB
     Dosage: 200 MG, QD
     Route: 065
     Dates: end: 20220626
  3. FULVESTRANT [Suspect]
     Active Substance: FULVESTRANT
     Indication: Product used for unknown indication
     Dosage: UNK, CYCLIC (HORMONAL THERAPY GIVEN, 4 CYCLES)
     Route: 030

REACTIONS (6)
  - Cellulitis [Fatal]
  - Sepsis [Fatal]
  - Urinary tract infection [Fatal]
  - Hyperglycaemia [Unknown]
  - Rash [Unknown]
  - Fatigue [Unknown]
